FAERS Safety Report 24282633 (Version 1)
Quarter: 2024Q3

REPORT INFORMATION
  Report Type: Other
  Country: US (occurrence: US)
  Receive Date: 20240904
  Receipt Date: 20240904
  Transmission Date: 20241017
  Serious: Yes (Hospitalization, Other)
  Sender: PL DEVELOPMENTS
  Company Number: US-P+L Developments of Newyork Corporation-2161150

PATIENT
  Age: 51 Year
  Sex: Male

DRUGS (1)
  1. MINOXIDIL [Suspect]
     Active Substance: MINOXIDIL
     Indication: Hypertension
     Route: 048

REACTIONS (6)
  - Accidental exposure to product [Unknown]
  - Electrocardiogram ST-T segment depression [Recovered/Resolved]
  - Electrocardiogram ST segment elevation [Recovered/Resolved]
  - Overdose [Unknown]
  - Pulmonary oedema [Recovered/Resolved]
  - Distributive shock [Recovered/Resolved]
